FAERS Safety Report 16238835 (Version 1)
Quarter: 2019Q2

REPORT INFORMATION
  Report Type: Spontaneous
  Country: US (occurrence: US)
  Receive Date: 20190424
  Receipt Date: 20190424
  Transmission Date: 20190711
  Serious: Yes (Disabling)
  Sender: FDA-Public Use
  Company Number: None

PATIENT
  Age: 71 Year
  Sex: Male
  Weight: 112.5 kg

DRUGS (9)
  1. REPATHA [Suspect]
     Active Substance: EVOLOCUMAB
     Indication: BLOOD CHOLESTEROL
     Dosage: ?          QUANTITY:1 INJECTION(S);OTHER FREQUENCY:ONCE PER MONTH;?
     Route: 030
     Dates: start: 20180901, end: 20190301
  2. BRILINTA [Concomitant]
     Active Substance: TICAGRELOR
  3. TIKOSYN [Concomitant]
     Active Substance: DOFETILIDE
  4. TAMSULOSIN [Concomitant]
     Active Substance: TAMSULOSIN
  5. CARVEDIOL [Concomitant]
     Active Substance: CARVEDILOL
  6. FISH OIL [Concomitant]
     Active Substance: FISH OIL
  7. BUPROPION. [Concomitant]
     Active Substance: BUPROPION
  8. CQ10 [Concomitant]
     Active Substance: UBIDECARENONE
  9. WELLBUTRIN [Concomitant]
     Active Substance: BUPROPION HYDROCHLORIDE

REACTIONS (5)
  - Weight increased [None]
  - Depression [None]
  - Muscular weakness [None]
  - Myalgia [None]
  - Feeling of despair [None]

NARRATIVE: CASE EVENT DATE: 20181201
